FAERS Safety Report 5709854-X (Version None)
Quarter: 2008Q2

REPORT INFORMATION
  Report Type: 
  Country: None (occurrence: None)
  Receive Date: 20080418
  Receipt Date: 20080311
  Transmission Date: 20081010
  Serious: No
  Sender: FDA-Public Use
  Company Number: US-ASTRAZENECA-2007UW02886

PATIENT
  Age: 70 Year
  Sex: Female
  Weight: 78 kg

DRUGS (5)
  1. TOPROL-XL [Suspect]
     Indication: HYPERTENSION
     Route: 048
     Dates: start: 20070201
  2. TOPROL-XL [Suspect]
     Route: 048
  3. ZESTRIL [Suspect]
     Indication: HYPERTENSION
     Route: 048
  4. ZESTRIL [Suspect]
     Route: 048
     Dates: start: 20070801
  5. NEXIUM [Concomitant]
     Route: 048
     Dates: start: 20070201

REACTIONS (11)
  - COUGH [None]
  - DEPRESSION [None]
  - DIZZINESS [None]
  - DRY THROAT [None]
  - DYSPHAGIA [None]
  - FATIGUE [None]
  - FEELING ABNORMAL [None]
  - FLUSHING [None]
  - PALPITATIONS [None]
  - PHARYNGOLARYNGEAL PAIN [None]
  - VOMITING [None]
